FAERS Safety Report 18362246 (Version 2)
Quarter: 2020Q4

REPORT INFORMATION
  Report Type: Other
  Country: US (occurrence: US)
  Receive Date: 20201009
  Receipt Date: 20201013
  Transmission Date: 20210114
  Serious: Yes (Hospitalization)
  Sender: FDA-Public Use
  Company Number: US-ROCHE-2691142

PATIENT
  Sex: Male

DRUGS (2)
  1. ROZLYTREK [Suspect]
     Active Substance: ENTRECTINIB
     Indication: LUNG NEOPLASM MALIGNANT
     Dosage: 200 MG CAPSULE (TAKE 3 CAPSULE(S) BY MOUTH DAILY)
     Route: 048
  2. ROZLYTREK [Suspect]
     Active Substance: ENTRECTINIB
     Indication: METASTASES TO PLEURA

REACTIONS (1)
  - Myocardial infarction [Unknown]
